FAERS Safety Report 6993385-3 (Version None)
Quarter: 2010Q3

REPORT INFORMATION
  Report Type: 
  Country: None (occurrence: None)
  Receive Date: 20100917
  Receipt Date: 20100119
  Transmission Date: 20110219
  Serious: Yes (Hospitalization, Other)
  Sender: FDA-Public Use
  Company Number: US-ASTRAZENECA-2010SE02477

PATIENT
  Age: 64 Year
  Sex: Male
  Weight: 81.6 kg

DRUGS (4)
  1. SEROQUEL [Suspect]
     Indication: DEPRESSION
     Route: 048
     Dates: start: 20090301, end: 20090401
  2. SEROQUEL [Suspect]
     Route: 048
     Dates: start: 20090401, end: 20090501
  3. METFORMIN [Concomitant]
     Indication: DIABETES MELLITUS
  4. PROZAC [Concomitant]
     Dates: start: 20090501

REACTIONS (4)
  - DEPRESSION [None]
  - SUICIDE ATTEMPT [None]
  - TOOTH LOSS [None]
  - WEIGHT DECREASED [None]
